FAERS Safety Report 24191977 (Version 1)
Quarter: 2024Q3

REPORT INFORMATION
  Report Type: Report from Study
  Country: ZA (occurrence: ZA)
  Receive Date: 20240809
  Receipt Date: 20240809
  Transmission Date: 20241016
  Serious: Yes (Hospitalization)
  Sender: BIOVITRUM
  Company Number: ZA-AstraZeneca-2022A192966

PATIENT
  Age: 11 Week
  Sex: Male
  Weight: 1.8 kg

DRUGS (1)
  1. SYNAGIS [Suspect]
     Active Substance: PALIVIZUMAB
     Indication: Antiviral prophylaxis
     Dosage: ONCE IN A MONTH
     Route: 030
     Dates: start: 20220325

REACTIONS (2)
  - Heart rate abnormal [Unknown]
  - Haematochezia [Unknown]

NARRATIVE: CASE EVENT DATE: 20220516
